FAERS Safety Report 4947265-5 (Version None)
Quarter: 2006Q1

REPORT INFORMATION
  Report Type: 
  Country: None (occurrence: None)
  Receive Date: 20060313
  Receipt Date: 20060228
  Transmission Date: 20060701
  Serious: Yes (Hospitalization, Disabling)
  Sender: FDA-Public Use
  Company Number: 222607

PATIENT
  Age: 47 Year
  Sex: Female

DRUGS (3)
  1. HERCEPTIN [Suspect]
     Dosage: 190 MG, 1/WEEK, INTRAVENOUS; 380 MG, INTRAVENOUS
     Route: 042
     Dates: start: 20040127, end: 20040920
  2. LEVAQUIN [Concomitant]
  3. INHALER (TYPE UNKNOWN) (GENERIC COMPONENT(S) NOT KNOWN) [Concomitant]

REACTIONS (1)
  - ALVEOLITIS [None]
